FAERS Safety Report 24595326 (Version 1)
Quarter: 2024Q4

REPORT INFORMATION
  Report Type: Spontaneous
  Country: CZ (occurrence: CZ)
  Receive Date: 20241109
  Receipt Date: 20241109
  Transmission Date: 20250114
  Serious: Yes (Other)
  Sender: ROCHE
  Company Number: CZ-ROCHE-10000102842

PATIENT
  Age: 75 Year
  Sex: Male

DRUGS (7)
  1. ERLOTINIB [Suspect]
     Active Substance: ERLOTINIB
     Indication: Adenocarcinoma
     Route: 065
  2. BEVACIZUMAB [Suspect]
     Active Substance: BEVACIZUMAB
     Indication: Adenocarcinoma
     Route: 065
     Dates: start: 202107, end: 202109
  3. ATEZOLIZUMAB [Suspect]
     Active Substance: ATEZOLIZUMAB
     Indication: Adenocarcinoma
     Route: 065
     Dates: start: 202110, end: 202202
  4. CARBOPLATIN [Suspect]
     Active Substance: CARBOPLATIN
     Indication: Adenocarcinoma
     Route: 065
     Dates: start: 202107, end: 202109
  5. PEMETREXED [Suspect]
     Active Substance: PEMETREXED
     Indication: Adenocarcinoma
     Route: 065
     Dates: start: 202107, end: 202109
  6. DOCETAXEL [Concomitant]
     Active Substance: DOCETAXEL
  7. SOTORASIB [Concomitant]
     Active Substance: SOTORASIB

REACTIONS (5)
  - Metastases to lung [Unknown]
  - Neutropenia [Unknown]
  - Disease progression [Unknown]
  - Diarrhoea [Unknown]
  - Rash [Unknown]
